FAERS Safety Report 4916602-X (Version None)
Quarter: 2006Q1

REPORT INFORMATION
  Report Type: 
  Country: None (occurrence: None)
  Receive Date: 20060220
  Receipt Date: 20060207
  Transmission Date: 20060701
  Serious: Yes (Hospitalization)
  Sender: FDA-Public Use
  Company Number: FR-GLAXOSMITHKLINE-B0409322A

PATIENT
  Age: 20 Year
  Sex: Male

DRUGS (1)
  1. AMOXICILLIN TRIHYDRATE [Suspect]
     Dosage: 1G PER DAY
     Route: 048
     Dates: start: 20051101, end: 20050101

REACTIONS (6)
  - ANAPHYLACTOID REACTION [None]
  - DYSPHAGIA [None]
  - DYSPHONIA [None]
  - DYSPNOEA [None]
  - MALAISE [None]
  - PHARYNGOLARYNGEAL PAIN [None]
